FAERS Safety Report 10716003 (Version 1)
Quarter: 2015Q1

REPORT INFORMATION
  Report Type: Spontaneous
  Country: US (occurrence: None)
  Receive Date: 20150109
  Receipt Date: 20150109
  Transmission Date: 20150721
  Serious: Yes (Hospitalization)
  Sender: FDA-Public Use
  Company Number: 2014PROUSA03910

PATIENT
  Age: 66 Year
  Sex: Male
  Weight: 98.2 kg

DRUGS (12)
  1. NAPROXEN. [Concomitant]
     Active Substance: NAPROXEN
  2. LUMIGAN (BIMATOPROST) [Concomitant]
  3. LUPRON (LEUPRORELIN ACETATE) [Concomitant]
  4. SENNA [Concomitant]
     Active Substance: SENNA LEAF\SENNOSIDES\SENNOSIDES A AND B
  5. TRAZODONE [Concomitant]
     Active Substance: TRAZODONE HYDROCHLORIDE
  6. FLONASE [Concomitant]
     Active Substance: FLUTICASONE PROPIONATE
  7. LORATADINE. [Concomitant]
     Active Substance: LORATADINE
  8. VITAMIN C [Concomitant]
     Active Substance: ASCORBIC ACID
  9. ZOMETA [Concomitant]
     Active Substance: ZOLEDRONIC ACID
  10. PROVENGE [Suspect]
     Active Substance: SIPULEUCEL-T
     Indication: PROSTATE CANCER METASTATIC
     Dosage: 250 ML, SINGLE, INTRAVENOUS
     Route: 042
     Dates: start: 20140714, end: 20140714
  11. MAGNESIUM [Concomitant]
     Active Substance: MAGNESIUM
  12. HYDROCHLOROTHIAZIDE. [Concomitant]
     Active Substance: HYDROCHLOROTHIAZIDE

REACTIONS (2)
  - Cauda equina syndrome [None]
  - Spinal cord compression [None]

NARRATIVE: CASE EVENT DATE: 20140714
